FAERS Safety Report 8761265 (Version 7)
Quarter: 2013Q2

REPORT INFORMATION
  Report Type: Spontaneous
  Country: US (occurrence: US)
  Receive Date: 20120830
  Receipt Date: 20130618
  Transmission Date: 20140414
  Serious: Yes (Hospitalization, Disabling, Other)
  Sender: FDA-Public Use
  Company Number: US-MERCK-1208USA010841

PATIENT
  Sex: Female

DRUGS (6)
  1. FOSAMAX [Suspect]
     Indication: OSTEOPOROSIS
     Dosage: 35 MG, UNK
     Route: 048
     Dates: start: 20020830, end: 20080703
  2. FOSAMAX [Suspect]
     Dosage: 70 MG, UNK
     Route: 048
     Dates: start: 20020830, end: 20080703
  3. ALENDRONATE SODIUM [Suspect]
     Indication: OSTEOPOROSIS
     Dosage: 70 MG, QW
     Route: 048
     Dates: start: 20080205, end: 20100103
  4. CALCIUM (UNSPECIFIED) [Concomitant]
     Dosage: 600 MG, BID
     Dates: start: 2000
  5. VITAMIN D (UNSPECIFIED) [Concomitant]
     Dosage: 800 IU, BID
     Dates: start: 2002
  6. PROTONIX [Concomitant]
     Indication: GASTROOESOPHAGEAL REFLUX DISEASE
     Dosage: 40 MG, QD
     Dates: start: 2002

REACTIONS (38)
  - Internal fixation of fracture [Unknown]
  - Fall [Unknown]
  - External fixation of fracture [Unknown]
  - Urinary tract infection pseudomonal [Unknown]
  - Open reduction of fracture [Unknown]
  - Spinal fusion surgery [Unknown]
  - Cellulitis [Recovered/Resolved]
  - Oophorectomy [Unknown]
  - Rhabdomyolysis [Unknown]
  - Sinoatrial block [Unknown]
  - Femur fracture [Unknown]
  - Femur fracture [Unknown]
  - Foot fracture [Unknown]
  - Dental implantation [Unknown]
  - Tooth extraction [Unknown]
  - Blood cholesterol increased [Unknown]
  - Hysterectomy [Unknown]
  - Toxicity to various agents [Unknown]
  - Scapula fracture [Unknown]
  - Clavicle fracture [Unknown]
  - Dehydration [Recovered/Resolved]
  - Bunion operation [Unknown]
  - Haemorrhoid operation [Unknown]
  - Inguinal hernia repair [Unknown]
  - Prolapse repair [Unknown]
  - Osteopenia [Unknown]
  - Arthritis [Unknown]
  - Rib fracture [Unknown]
  - Spinal osteoarthritis [Unknown]
  - Oxygen saturation decreased [Unknown]
  - Hypercholesterolaemia [Unknown]
  - Anaemia [Unknown]
  - Back pain [Unknown]
  - Aphthous stomatitis [Recovered/Resolved]
  - Neck pain [Unknown]
  - Vomiting [Unknown]
  - Nausea [Unknown]
  - Constipation [Recovered/Resolved]
